FAERS Safety Report 9325542 (Version 4)
Quarter: 2013Q4

REPORT INFORMATION
  Report Type: Report from Study
  Country: CA (occurrence: CA)
  Receive Date: 20130604
  Receipt Date: 20131030
  Transmission Date: 20140711
  Serious: Yes (Death, Hospitalization, Other)
  Sender: FDA-Public Use
  Company Number: PHHY2012CA123179

PATIENT
  Age: 57 Year
  Sex: Female

DRUGS (4)
  1. SANDOSTATIN LAR [Suspect]
     Indication: CARCINOID TUMOUR
     Dosage: 20 MG, ONCE A MONTH
     Route: 030
     Dates: start: 20121123
  2. SANDOSTATIN LAR [Suspect]
     Dosage: 30 MG, ONCE A MONTH
     Route: 030
  3. SANDOSTATIN [Suspect]
     Indication: PANCREATIC NEUROENDOCRINE TUMOUR
     Dosage: UNK UKN, UNK
     Route: 058
  4. AFINITOR [Suspect]
     Indication: NEUROENDOCRINE TUMOUR
     Dosage: 10 MG EVERY OTHER DAY
     Route: 048
     Dates: start: 20130904

REACTIONS (13)
  - Death [Fatal]
  - Loss of consciousness [Unknown]
  - Asthenia [Unknown]
  - Malignant neoplasm progression [Unknown]
  - Injection site mass [Recovered/Resolved]
  - Groin pain [Unknown]
  - Oedema peripheral [Unknown]
  - Poor peripheral circulation [Unknown]
  - Injection site pain [Recovered/Resolved]
  - Malaise [Unknown]
  - Drug ineffective [Unknown]
  - Gastrointestinal disorder [Unknown]
  - Dehydration [Unknown]
